FAERS Safety Report 20826486 (Version 1)
Quarter: 2022Q2

REPORT INFORMATION
  Report Type: Spontaneous
  Country: US (occurrence: US)
  Receive Date: 20220513
  Receipt Date: 20220513
  Transmission Date: 20220721
  Serious: No
  Sender: FDA-Public Use
  Company Number: US-PFIZER INC-202200676690

PATIENT
  Age: 71 Year
  Sex: Female
  Weight: 63.5 kg

DRUGS (1)
  1. PAXLOVID [Suspect]
     Active Substance: NIRMATRELVIR\RITONAVIR
     Indication: COVID-19 treatment
     Dosage: 3 DF, [FIRST DOSE (3 PILLS) LAST NIGHT]
     Dates: start: 20220505

REACTIONS (2)
  - Taste disorder [Not Recovered/Not Resolved]
  - Product taste abnormal [Not Recovered/Not Resolved]
